FAERS Safety Report 24868288 (Version 1)
Quarter: 2025Q1

REPORT INFORMATION
  Report Type: Spontaneous
  Country: US (occurrence: None)
  Receive Date: 20250119
  Receipt Date: 20250119
  Transmission Date: 20250408
  Serious: Yes (Life-Threatening, Hospitalization, Other)
  Sender: FDA-CTU
  Company Number: None

PATIENT
  Age: 22 Year
  Sex: Female
  Weight: 58.05 kg

DRUGS (12)
  1. PROZAC [Suspect]
     Active Substance: FLUOXETINE HYDROCHLORIDE
     Dosage: FREQUENCY : DAILY;?
  2. ADDERALL XR [Suspect]
     Active Substance: AMPHETAMINE ASPARTATE\AMPHETAMINE SULFATE\DEXTROAMPHETAMINE SACCHARATE\DEXTROAMPHETAMINE SULFATE
  3. GEODON [Suspect]
     Active Substance: ZIPRASIDONE HYDROCHLORIDE\ZIPRASIDONE MESYLATE
  4. VYVANSE [Concomitant]
     Active Substance: LISDEXAMFETAMINE DIMESYLATE
  5. LAMICTAL [Concomitant]
     Active Substance: LAMOTRIGINE
  6. ABILIFY [Concomitant]
     Active Substance: ARIPIPRAZOLE
  7. LEXAPRO [Concomitant]
     Active Substance: ESCITALOPRAM OXALATE
  8. WELLBUTRIN XL [Concomitant]
     Active Substance: BUPROPION HYDROCHLORIDE
  9. TOPAMAX [Concomitant]
     Active Substance: TOPIRAMATE
  10. SPIRONOLACTONE [Concomitant]
     Active Substance: SPIRONOLACTONE
  11. DOXYCYCLINE [Concomitant]
     Active Substance: DOXYCYCLINE
  12. MIRENA [Concomitant]
     Active Substance: LEVONORGESTREL

REACTIONS (5)
  - Insomnia [None]
  - Restlessness [None]
  - Weight decreased [None]
  - Migraine [None]
  - Serotonin syndrome [None]

NARRATIVE: CASE EVENT DATE: 20050619
